FAERS Safety Report 12840457 (Version 1)
Quarter: 2016Q4

REPORT INFORMATION
  Report Type: Spontaneous
  Country: US (occurrence: US)
  Receive Date: 20161012
  Receipt Date: 20161012
  Transmission Date: 20170207
  Serious: No
  Sender: FDA-Public Use
  Company Number: US-SHIRE-US201612050

PATIENT
  Sex: Female

DRUGS (1)
  1. XIIDRA [Suspect]
     Active Substance: LIFITEGRAST
     Indication: DRY EYE
     Dosage: 50 MG/ML  2X/DAY:BID
     Route: 047

REACTIONS (3)
  - Visual acuity reduced [Unknown]
  - Lacrimation increased [Unknown]
  - Sleep disorder [Unknown]
